FAERS Safety Report 6883409-6 (Version None)
Quarter: 2010Q3

REPORT INFORMATION
  Report Type: 
  Country: None (occurrence: None)
  Receive Date: 20100729
  Receipt Date: 20100716
  Transmission Date: 20110219
  Serious: Yes (Hospitalization)
  Sender: FDA-Public Use
  Company Number: CA-ELI_LILLY_AND_COMPANY-CA201007004159

PATIENT
  Age: 78 Year
  Sex: Female

DRUGS (20)
  1. FORTEO [Suspect]
     Indication: OSTEOPOROSIS
     Dosage: 20 UG, DAILY (1/D)
     Route: 058
     Dates: start: 20100628, end: 20100714
  2. FENTANYL [Concomitant]
  3. NITROGLYCERIN [Concomitant]
  4. DILAUDID [Concomitant]
  5. METFORMIN HCL [Concomitant]
  6. SLOW-FE [Concomitant]
  7. COZAAR [Concomitant]
  8. SIMVASTATIN [Concomitant]
  9. EZETROL [Concomitant]
  10. SLOW-K [Concomitant]
  11. AMLODIPINE [Concomitant]
  12. FUROSEMIDE [Concomitant]
  13. PANTOLOC                           /01263202/ [Concomitant]
  14. METOCLOPRAMIDE [Concomitant]
  15. OXAZEPAM [Concomitant]
  16. DIAZEPAM [Concomitant]
  17. ESCITALOPRAM [Concomitant]
  18. NYSTATIN [Concomitant]
  19. RASILEZ [Concomitant]
  20. CALCITONIN [Concomitant]

REACTIONS (2)
  - DYSPNOEA [None]
  - INFECTION [None]
